FAERS Safety Report 25892778 (Version 1)
Quarter: 2025Q4

REPORT INFORMATION
  Report Type: Spontaneous
  Country: CN (occurrence: CN)
  Receive Date: 20251007
  Receipt Date: 20251007
  Transmission Date: 20260118
  Serious: Yes (Other)
  Sender: INCYTE
  Company Number: CN-002147023-NVSC2025CN151838

PATIENT
  Age: 48 Year

DRUGS (6)
  1. RUXOLITINIB [Suspect]
     Active Substance: RUXOLITINIB
     Indication: Myeloproliferative neoplasm
     Dosage: 5 TO 15 MG, BID
     Route: 065
  2. RUXOLITINIB [Suspect]
     Active Substance: RUXOLITINIB
     Indication: Eosinophilia
  3. RUXOLITINIB [Suspect]
     Active Substance: RUXOLITINIB
     Indication: Bone marrow disorder
  4. HYDROXYUREA [Concomitant]
     Active Substance: HYDROXYUREA
     Indication: Myeloproliferative neoplasm
     Dosage: UNK
  5. HYDROXYUREA [Concomitant]
     Active Substance: HYDROXYUREA
     Indication: Eosinophilia
  6. HYDROXYUREA [Concomitant]
     Active Substance: HYDROXYUREA
     Indication: Bone marrow disorder

REACTIONS (4)
  - Myeloproliferative neoplasm [Unknown]
  - Malignant neoplasm progression [Unknown]
  - Off label use [Unknown]
  - Drug ineffective [Unknown]
